FAERS Safety Report 21606707 (Version 1)
Quarter: 2022Q4

REPORT INFORMATION
  Report Type: Report from Study
  Country: IT (occurrence: IT)
  Receive Date: 20221117
  Receipt Date: 20221117
  Transmission Date: 20230113
  Serious: Yes (Death, Other)
  Sender: FDA-Public Use
  Company Number: IT-BRISTOL-MYERS SQUIBB COMPANY-2022-136628

PATIENT
  Age: 81 Year
  Sex: Female

DRUGS (1)
  1. ORENCIA [Suspect]
     Active Substance: ABATACEPT
     Indication: Rheumatoid arthritis
     Dosage: FORM OF ADMIN: DEVICE
     Route: 065
     Dates: start: 20190510

REACTIONS (1)
  - Death [Fatal]

NARRATIVE: CASE EVENT DATE: 20221111
